FAERS Safety Report 5578901-0 (Version None)
Quarter: 2008Q1

REPORT INFORMATION
  Report Type: 
  Country: None (occurrence: None)
  Receive Date: 20080102
  Receipt Date: 20071129
  Transmission Date: 20080703
  Serious: No
  Sender: FDA-Public Use
  Company Number: US-BAYER-200713958BWH

PATIENT
  Age: 59 Year
  Sex: Female

DRUGS (3)
  1. CIPRO [Suspect]
     Indication: DRUG USE FOR UNKNOWN INDICATION
  2. BETASERON [Concomitant]
     Indication: MULTIPLE SCLEROSIS
     Route: 058
     Dates: start: 20060923, end: 20061124
  3. BETASERON [Concomitant]
     Route: 058
     Dates: start: 20061208

REACTIONS (3)
  - BLADDER PAIN [None]
  - BLADDER SPASM [None]
  - URINARY INCONTINENCE [None]
